FAERS Safety Report 22040406 (Version 1)
Quarter: 2023Q1

REPORT INFORMATION
  Report Type: Other
  Country: US (occurrence: None)
  Receive Date: 20230227
  Receipt Date: 20230227
  Transmission Date: 20230418
  Serious: Yes (Other)
  Sender: FDA-Public Use
  Company Number: US-ROCHE-3293539

PATIENT
  Age: 51 Year
  Sex: Female

DRUGS (2)
  1. OCREVUS [Suspect]
     Active Substance: OCRELIZUMAB
     Indication: Relapsing multiple sclerosis
     Dosage: INFUSE 600MG INTRAVENOUSLY EVERY 6 MONTH, 300 MG IV Q 2 WEEKS X 2, LAST DATE OF TREATMENT: 07/27/202
     Route: 042
     Dates: start: 20181101, end: 20210127
  2. VITAMIN D3 [Concomitant]
     Active Substance: CHOLECALCIFEROL

REACTIONS (1)
  - Urinary tract infection [Not Recovered/Not Resolved]
